FAERS Safety Report 24383615 (Version 2)
Quarter: 2025Q2

REPORT INFORMATION
  Report Type: Spontaneous
  Country: SI (occurrence: SI)
  Receive Date: 20241001
  Receipt Date: 20250429
  Transmission Date: 20250716
  Serious: Yes (Death, Other)
  Sender: TAKEDA
  Company Number: SI-INCYTE CORPORATION-2024IN010285

PATIENT
  Sex: Female

DRUGS (1)
  1. ICLUSIG [Suspect]
     Active Substance: PONATINIB HYDROCHLORIDE
     Indication: Chronic myeloid leukaemia
     Dosage: 15 MILLIGRAM, QOD

REACTIONS (6)
  - Chronic myeloid leukaemia [Fatal]
  - Disease progression [Fatal]
  - Deep vein thrombosis [Unknown]
  - Cytopenia [Unknown]
  - Thrombophlebitis [Unknown]
  - Off label use [Unknown]
